FAERS Safety Report 4358551-4 (Version None)
Quarter: 2004Q2

REPORT INFORMATION
  Report Type: 
  Country: None (occurrence: None)
  Receive Date: 20040514
  Receipt Date: 20040425
  Transmission Date: 20050107
  Serious: Yes (Other)
  Sender: FDA-Public Use
  Company Number: PHBS2004JO06315

PATIENT
  Age: 43 Year
  Sex: Female
  Weight: 85 kg

DRUGS (3)
  1. GLEEVEC [Suspect]
     Indication: CHRONIC MYELOID LEUKAEMIA
     Dosage: 400 MG/DAY
     Route: 048
     Dates: start: 20030223
  2. ADALAT [Concomitant]
  3. LASIX [Concomitant]

REACTIONS (3)
  - AMINOACIDURIA [None]
  - OVARIAN CYST [None]
  - VAGINAL HAEMORRHAGE [None]
